FAERS Safety Report 10014948 (Version 1)
Quarter: 2014Q1

REPORT INFORMATION
  Report Type: Spontaneous
  Country: US (occurrence: US)
  Receive Date: 20140317
  Receipt Date: 20140317
  Transmission Date: 20141002
  Serious: Yes (Other)
  Sender: FDA-Public Use
  Company Number: US-TEVA-468252USA

PATIENT
  Sex: Female

DRUGS (1)
  1. JOLESSA TABLET 0.15/0.03MG [Suspect]
     Indication: CONTRACEPTION

REACTIONS (1)
  - Suicidal behaviour [Unknown]
